FAERS Safety Report 6881766-8 (Version None)
Quarter: 2010Q3

REPORT INFORMATION
  Report Type: 
  Country: None (occurrence: None)
  Receive Date: 20100729
  Receipt Date: 20100719
  Transmission Date: 20110219
  Serious: Yes (Other)
  Sender: FDA-Public Use
  Company Number: GB-WYE-G06421110

PATIENT
  Age: 70 Year
  Sex: Male
  Weight: 73 kg

DRUGS (6)
  1. VENLAFAXINE HYDROCHLORIDE [Suspect]
     Indication: DEPRESSION
     Dates: start: 20060201
  2. VENLAFAXINE HYDROCHLORIDE [Suspect]
     Indication: ANXIETY
  3. CLONAZEPAM [Concomitant]
  4. MIRTAZAPINE [Suspect]
     Indication: DEPRESSION
     Route: 048
     Dates: start: 20060601
  5. MIRTAZAPINE [Suspect]
     Indication: ANXIETY
     Dosage: 15MG, FREQUENCY UNKNOWN
  6. MIRTAZAPINE [Suspect]
     Dosage: 30MG, FREQUENCY UNKNOWN
     Dates: end: 20060601

REACTIONS (4)
  - COGWHEEL RIGIDITY [None]
  - DRUG WITHDRAWAL SYNDROME [None]
  - MALAISE [None]
  - PARKINSONIAN GAIT [None]
